FAERS Safety Report 7565705-2 (Version None)
Quarter: 2011Q2

REPORT INFORMATION
  Report Type: 
  Country: None (occurrence: None)
  Receive Date: 20110623
  Receipt Date: 20100618
  Transmission Date: 20111010
  Serious: No
  Sender: FDA-Public Use
  Company Number: US-MUTUAL PHARMACEUTICAL COMPANY, INC.-1-23127473

PATIENT
  Sex: Female
  Weight: 68.1 kg

DRUGS (5)
  1. METOCLOPRAMIDE [Suspect]
     Route: 065
     Dates: end: 20100101
  2. PROTONIX (PANTOPRAZOLE), CIMETIDINE [Concomitant]
  3. DIPHENHYDRAMINE, DULOXETINE, PROMETHAZINE, AMBIEN (ZOLPIDEM) 10 MG [Concomitant]
  4. GLYBURIDE, MUSCLE RELAXER, ZOLOFT (SERTRALINE) 50 MG [Concomitant]
  5. REGLAN [Suspect]
     Route: 065
     Dates: end: 20100101

REACTIONS (7)
  - DIZZINESS [None]
  - NAUSEA [None]
  - DYSKINESIA [None]
  - EXTRAPYRAMIDAL DISORDER [None]
  - TREMOR [None]
  - EMOTIONAL DISORDER [None]
  - INCORRECT DRUG ADMINISTRATION DURATION [None]
